FAERS Safety Report 8113343-5 (Version None)
Quarter: 2012Q1

REPORT INFORMATION
  Report Type: 
  Country: None (occurrence: None)
  Receive Date: 20120203
  Receipt Date: 20120130
  Transmission Date: 20120608
  Serious: Yes (Other)
  Sender: FDA-Public Use
  Company Number: PHHY2012ZA008678

PATIENT
  Sex: Female

DRUGS (3)
  1. ZOLEDRONOC ACID [Suspect]
     Dosage: 5 MG PER 100 ML SOLUTION FOR INFUSION
     Route: 042
     Dates: start: 20120124
  2. ZOLEDRONOC ACID [Suspect]
     Dosage: 5 MG PER 100 ML SOLUTION FOR INFUSION
     Route: 042
     Dates: start: 20100101
  3. ZOLEDRONOC ACID [Suspect]
     Dosage: 5 MG PER 100 ML SOLUTION FOR INFUSION
     Route: 042
     Dates: start: 20110101

REACTIONS (3)
  - HYPOKINESIA [None]
  - CHEST DISCOMFORT [None]
  - JOINT SWELLING [None]
